FAERS Safety Report 7812542-7 (Version None)
Quarter: 2011Q4

REPORT INFORMATION
  Report Type: 
  Country: None (occurrence: None)
  Receive Date: 20111013
  Receipt Date: 20111011
  Transmission Date: 20120403
  Serious: Yes (Other)
  Sender: FDA-Public Use
  Company Number: US-PFIZER INC-2011243185

PATIENT
  Sex: Female
  Weight: 72 kg

DRUGS (16)
  1. SEROQUEL [Concomitant]
     Dosage: UNK
  2. PEPCID [Concomitant]
     Dosage: UNK
  3. KEPPRA [Concomitant]
     Dosage: UNK
  4. LATUDA [Concomitant]
     Dosage: UNK
  5. CHANTIX [Suspect]
     Indication: SMOKING CESSATION THERAPY
     Dosage: 0.5 MG, 1X/DAY
     Route: 048
  6. SOMA [Concomitant]
     Dosage: UNK
  7. NEXIUM [Concomitant]
     Dosage: UNK
  8. PROVENTIL GENTLEHALER [Concomitant]
     Dosage: UNK
  9. VYTORIN [Concomitant]
     Dosage: UNK
  10. CLARITIN [Concomitant]
     Dosage: UNK
  11. MARINOL [Concomitant]
     Dosage: UNK
  12. VALIUM [Concomitant]
     Dosage: UNK
  13. SINGULAIR [Concomitant]
     Dosage: UNK
  14. CHANTIX [Suspect]
     Dosage: UNK
     Route: 048
  15. CYMBALTA [Concomitant]
     Dosage: UNK
  16. METFORMIN [Concomitant]
     Dosage: UNK

REACTIONS (1)
  - SUICIDE ATTEMPT [None]
